FAERS Safety Report 5107305-X (Version None)
Quarter: 2006Q3

REPORT INFORMATION
  Report Type: 
  Country: None (occurrence: None)
  Receive Date: 20060912
  Receipt Date: 20060813
  Transmission Date: 20061208
  Serious: Yes (Hospitalization)
  Sender: FDA-Public Use
  Company Number: HQWYE236401SEP06

PATIENT
  Age: 67 Year
  Sex: Male

DRUGS (14)
  1. EUPANTOL              (PANTOPRAZOLE,  DELAYED RELEASE) [Suspect]
     Dosage: 40 MG 1 X PER 1 DAY
     Route: 048
     Dates: start: 20060310
  2. PLAVIX (CLOPIDOGREML SULFATE) [Concomitant]
  3. SIMVASTATIN [Concomitant]
  4. CHONDROSULF (CHONDROITIN SULFATE SODIUM) [Concomitant]
  5. COPPER (COPPER) [Concomitant]
  6. GOLD (GOLD) [Concomitant]
  7. SELENIUM (SELENIUM) [Concomitant]
  8. SYNEDIL (SULPIRIDE) [Concomitant]
  9. SYNEDIL (SULPIRIDE) [Concomitant]
  10. COLCHICUM JTL LIQ [Concomitant]
  11. INEXIUM (ESOMEPRAZOLE) [Concomitant]
  12. TILCOTIL (TENOXICAM) [Concomitant]
  13. KARDEGIC (ACETYLSALICYLIC LYSINE) [Concomitant]
  14. CREON [Concomitant]

REACTIONS (9)
  - AFFECT LABILITY [None]
  - AMYOTROPHIC LATERAL SCLEROSIS [None]
  - BALANCE DISORDER [None]
  - CONCOMITANT DISEASE PROGRESSION [None]
  - DYSPHAGIA [None]
  - INCONTINENCE [None]
  - PSEUDOBULBAR PALSY [None]
  - PYRAMIDAL TRACT SYNDROME [None]
  - SPEECH DISORDER [None]
